FAERS Safety Report 15713853 (Version 1)
Quarter: 2018Q4

REPORT INFORMATION
  Report Type: Spontaneous
  Country: US (occurrence: US)
  Receive Date: 20181129
  Receipt Date: 20181129
  Transmission Date: 20190205
  Serious: Yes (Other)
  Sender: FDA-Public Use
  Company Number: None

PATIENT
  Age: 10 Year
  Sex: Male
  Weight: 77.4 kg

DRUGS (3)
  1. GUANFACINE ER 3MG [Suspect]
     Active Substance: GUANFACINE
     Indication: IMPULSIVE BEHAVIOUR
     Dosage: ?          OTHER FREQUENCY:1 X DAILY;?
     Route: 048
  2. GUANFACINE ER 3MG [Suspect]
     Active Substance: GUANFACINE
     Indication: PSYCHOMOTOR HYPERACTIVITY
     Dosage: ?          OTHER FREQUENCY:1 X DAILY;?
     Route: 048
  3. GUANFACINE ER 3MG [Suspect]
     Active Substance: GUANFACINE
     Indication: DISTURBANCE IN ATTENTION
     Dosage: ?          OTHER FREQUENCY:1 X DAILY;?
     Route: 048

REACTIONS (3)
  - Manufacturing materials issue [None]
  - Product substitution issue [None]
  - Aggression [None]
